FAERS Safety Report 9002826 (Version 1)
Quarter: 2012Q4

REPORT INFORMATION
  Report Type: Spontaneous
  Country: JP (occurrence: None)
  Receive Date: 20121226
  Receipt Date: 20121226
  Transmission Date: 20130627
  Serious: Yes (Other)
  Sender: FDA-Public Use
  Company Number: AXC-2012-000588

PATIENT
  Age: 13 Year
  Sex: Male

DRUGS (2)
  1. URSODEOXYCHOLIC ACID [Suspect]
     Indication: CHOLANGITIS SCLEROSING
     Route: 048
  2. MESALAZINE [Suspect]
     Indication: PANCOLITIS

REACTIONS (2)
  - Diarrhoea haemorrhagic [None]
  - Pyrexia [None]
